FAERS Safety Report 14172795 (Version 1)
Quarter: 2017Q4

REPORT INFORMATION
  Report Type: Spontaneous
  Country: US (occurrence: US)
  Receive Date: 20171108
  Receipt Date: 20171108
  Transmission Date: 20180321
  Serious: Yes (Hospitalization)
  Sender: FDA-Public Use
  Company Number: None

PATIENT
  Age: 76 Year
  Sex: Male
  Weight: 82.6 kg

DRUGS (18)
  1. APIXABAN [Concomitant]
     Active Substance: APIXABAN
  2. LACTOBACILLUS [Concomitant]
     Active Substance: LACTOBACILLUS ACIDOPHILUS
  3. ACETAMINOPHEN. [Concomitant]
     Active Substance: ACETAMINOPHEN
  4. METHYLPREDNISOLONE. [Concomitant]
     Active Substance: METHYLPREDNISOLONE
  5. TRIAMCINOLONE [Concomitant]
     Active Substance: TRIAMCINOLONE
  6. ASPIRIN. [Concomitant]
     Active Substance: ASPIRIN
  7. TAPENTADOL [Suspect]
     Active Substance: TAPENTADOL
     Indication: PAIN
     Route: 048
     Dates: start: 20170623, end: 20170625
  8. CYANOCOBALAMIN. [Concomitant]
     Active Substance: CYANOCOBALAMIN
  9. GABAPENTIN. [Concomitant]
     Active Substance: GABAPENTIN
  10. INSULIN GLARGINE [Concomitant]
     Active Substance: INSULIN GLARGINE
  11. MUPIROCIN. [Concomitant]
     Active Substance: MUPIROCIN
  12. ACETAZOLAMIDE. [Concomitant]
     Active Substance: ACETAZOLAMIDE
  13. ATORVASTATIN [Concomitant]
     Active Substance: ATORVASTATIN
  14. FAMOTIDINE. [Concomitant]
     Active Substance: FAMOTIDINE
  15. INSULIN ASPART [Concomitant]
     Active Substance: INSULIN ASPART
  16. MULTIVITAMIN [Concomitant]
     Active Substance: VITAMINS
  17. VANCOMYCIN [Concomitant]
     Active Substance: VANCOMYCIN
  18. MEROPENEM. [Concomitant]
     Active Substance: MEROPENEM

REACTIONS (2)
  - Respiratory depression [None]
  - Therapy cessation [None]

NARRATIVE: CASE EVENT DATE: 20170625
